FAERS Safety Report 7533693-0 (Version None)
Quarter: 2011Q2

REPORT INFORMATION
  Report Type: 
  Country: None (occurrence: None)
  Receive Date: 20110608
  Receipt Date: 20110526
  Transmission Date: 20111010
  Serious: Yes (Hospitalization, Other)
  Sender: FDA-Public Use
  Company Number: US-UCBSA-034143

PATIENT
  Sex: Male
  Weight: 92.53 kg

DRUGS (1)
  1. CIMZIA [Suspect]
     Indication: CROHN'S DISEASE
     Dosage: 02 INJECTIONS
     Route: 058
     Dates: start: 20110101, end: 20110501

REACTIONS (4)
  - BLOOD AMYLASE ABNORMAL [None]
  - LIPASE INCREASED [None]
  - TENDONITIS [None]
  - PANCREATITIS [None]
